FAERS Safety Report 10559197 (Version 1)
Quarter: 2014Q4

REPORT INFORMATION
  Report Type: Spontaneous
  Country: CN (occurrence: CN)
  Receive Date: 20141103
  Receipt Date: 20141103
  Transmission Date: 20150529
  Serious: Yes (Hospitalization, Other)
  Sender: FDA-Public Use
  Company Number: CN-JNJFOC-20141017071

PATIENT
  Age: 10 Year
  Sex: Female
  Weight: 39 kg

DRUGS (4)
  1. PENICILLIN [Suspect]
     Active Substance: PENICILLIN
     Indication: BRONCHITIS
     Dosage: OR 1 DOSE EVERY 12 HOURS
     Route: 042
     Dates: start: 20140311, end: 20140315
  2. RIBAVIRIN. [Suspect]
     Active Substance: RIBAVIRIN
     Indication: BRONCHITIS
     Route: 042
     Dates: start: 20140311, end: 20140315
  3. INFANTS TYLENOL [Suspect]
     Active Substance: ACETAMINOPHEN
     Route: 048
  4. INFANTS TYLENOL [Suspect]
     Active Substance: ACETAMINOPHEN
     Indication: PYREXIA
     Route: 048
     Dates: start: 20140311, end: 20140315

REACTIONS (3)
  - Body temperature fluctuation [Recovered/Resolved]
  - Leukopenia [Recovering/Resolving]
  - Cough [Recovered/Resolved]

NARRATIVE: CASE EVENT DATE: 201403
